FAERS Safety Report 10957533 (Version 3)
Quarter: 2015Q2

REPORT INFORMATION
  Report Type: Spontaneous
  Country: DE (occurrence: DE)
  Receive Date: 20150326
  Receipt Date: 20150608
  Transmission Date: 20150821
  Serious: Yes (Life-Threatening, Hospitalization)
  Sender: FDA-Public Use
  Company Number: DE-BRACCO-001904

PATIENT
  Age: 38 Year
  Sex: Female
  Weight: 60 kg

DRUGS (7)
  1. NORMAL SALINE [Concomitant]
     Active Substance: SODIUM CHLORIDE
     Route: 042
     Dates: start: 20150304, end: 20150304
  2. FOLSAEURE [Concomitant]
     Active Substance: FOLIC ACID
     Indication: ANAEMIA
     Dosage: TAKING SINCE SEVERAL DAYS
     Route: 048
  3. VOLTAREN RESINAT [Concomitant]
     Active Substance: DICLOFENAC
     Indication: FRACTURE PAIN
     Dosage: TAKING SINCE SEVERAL DAYS
     Route: 048
  4. FERRO SANOL [Concomitant]
     Active Substance: FERROUS SULFATE\GLYCINE
     Indication: ANAEMIA
     Dosage: TAKING SINCE SEVERAL DAYS
     Route: 048
  5. MACROGOL [Concomitant]
     Active Substance: POLYETHYLENE GLYCOLS
     Indication: FAECALOMA
     Dosage: TAKING SINCE SEVERAL DAYS
     Route: 048
  6. SONOVUE [Suspect]
     Active Substance: SULFUR HEXAFLUORIDE
     Indication: ULTRASOUND LIVER
     Route: 040
     Dates: start: 20150304, end: 20150304
  7. PANTOPRAZOLE [Concomitant]
     Active Substance: PANTOPRAZOLE SODIUM
     Indication: FRACTURE PAIN
     Dosage: TAKING SINCE SEVERAL DAYS
     Route: 048

REACTIONS (4)
  - Retching [Recovered/Resolved]
  - Injection site pain [Recovered/Resolved]
  - Nausea [Recovered/Resolved]
  - Seizure [Recovered/Resolved]

NARRATIVE: CASE EVENT DATE: 20150304
